FAERS Safety Report 10562299 (Version 1)
Quarter: 2014Q4

REPORT INFORMATION
  Report Type: Spontaneous
  Country: IT (occurrence: None)
  Receive Date: 20141031
  Receipt Date: 20141031
  Transmission Date: 20150529
  Serious: Yes (Other)
  Sender: FDA-Public Use
  Company Number: 2014PIR00016

PATIENT
  Age: 55 Year
  Sex: Female

DRUGS (1)
  1. ARTICAINE [Suspect]
     Active Substance: ARTICAINE
     Indication: DENTAL OPERATION
     Route: 030
     Dates: start: 20141004, end: 20141004

REACTIONS (3)
  - Hypotension [None]
  - Hyperhidrosis [None]
  - Vomiting [None]

NARRATIVE: CASE EVENT DATE: 20141004
